FAERS Safety Report 5532873-3 (Version None)
Quarter: 2007Q4

REPORT INFORMATION
  Report Type: 
  Country: None (occurrence: None)
  Receive Date: 20071129
  Receipt Date: 20071112
  Transmission Date: 20080405
  Serious: Yes (Hospitalization)
  Sender: FDA-Public Use
  Company Number: 8023510

PATIENT
  Age: 37 Year
  Sex: Female

DRUGS (3)
  1. KEPPRA [Suspect]
     Indication: EPILEPSY
     Dosage: 1500 MG /D PO
     Route: 048
     Dates: start: 20021010
  2. PRENATAL [Concomitant]
  3. FOLIC ACID [Concomitant]

REACTIONS (10)
  - AUTOIMMUNE THYROIDITIS [None]
  - BED REST [None]
  - BREAST ENGORGEMENT [None]
  - CONVERSION DISORDER [None]
  - DRUG EXPOSURE DURING PREGNANCY [None]
  - FIBRONECTIN INCREASED [None]
  - PREMATURE LABOUR [None]
  - SUICIDAL IDEATION [None]
  - VAGINAL DISCHARGE [None]
  - WHITE BLOOD CELL COUNT INCREASED [None]
